FAERS Safety Report 9292197 (Version 2)
Quarter: 2013Q2

REPORT INFORMATION
  Report Type: Spontaneous
  Country: GB (occurrence: GB)
  Receive Date: 20130516
  Receipt Date: 20130617
  Transmission Date: 20140414
  Serious: Yes (Other)
  Sender: FDA-Public Use
  Company Number: GB-BAYER-2013-060035

PATIENT
  Age: 15 Year
  Sex: Female

DRUGS (1)
  1. YASMIN, FILM-COATED TABLETS, 0.03 MG/3 MG [Suspect]
     Indication: MENSTRUAL CYCLE MANAGEMENT
     Dosage: UNK
     Route: 048
     Dates: start: 201304

REACTIONS (9)
  - Skin discolouration [None]
  - Metrorrhagia [None]
  - Loss of consciousness [None]
  - Petit mal epilepsy [None]
  - Eye movement disorder [None]
  - Tremor [None]
  - Fatigue [None]
  - Pain in extremity [None]
  - Headache [None]
